FAERS Safety Report 5648159-2 (Version None)
Quarter: 2008Q1

REPORT INFORMATION
  Report Type: 
  Country: None (occurrence: None)
  Receive Date: 20080229
  Receipt Date: 20080225
  Transmission Date: 20080703
  Serious: Yes (Hospitalization)
  Sender: FDA-Public Use
  Company Number: CERZ-11840

PATIENT
  Age: 51 Year
  Sex: Female
  Weight: 57.1 kg

DRUGS (11)
  1. CEREZYME [Suspect]
     Indication: GAUCHER'S DISEASE
     Dosage: 45 U/KG, Q2W, INTRAVENOUS
     Route: 042
     Dates: start: 19910812
  2. PREDNISONE TAB [Concomitant]
  3. ALDACTONE [Concomitant]
  4. LASIX [Concomitant]
  5. NADOLOL [Concomitant]
  6. POTASSIUM CHLORIDE [Concomitant]
  7. MILK THISTLE [Concomitant]
  8. OSCAL (CALCIUM CARBONATE, VITAMIN D NOS) [Concomitant]
  9. SLOW-FE (FERROUS SULFATE) [Concomitant]
  10. B COMPLEX (NICOTINAMIDE, PYRIDOXINE HYDROCHLORIDE, RIBOFLAVIN, THIAMIN [Concomitant]
  11. LACTULOSE [Concomitant]

REACTIONS (4)
  - AUTOIMMUNE HEPATITIS [None]
  - CONDITION AGGRAVATED [None]
  - LIVER TRANSPLANT [None]
  - TYPE 2 DIABETES MELLITUS [None]
